FAERS Safety Report 4541782-8 (Version None)
Quarter: 2004Q4

REPORT INFORMATION
  Report Type: 
  Country: None (occurrence: None)
  Receive Date: 20041227
  Receipt Date: 20041213
  Transmission Date: 20050328
  Serious: Yes (Hospitalization)
  Sender: FDA-Public Use
  Company Number: 2004112975

PATIENT
  Age: 42 Year
  Sex: Male

DRUGS (5)
  1. HYDROCORTISONE [Suspect]
     Indication: ECZEMA
  2. BETAMETHASONE [Suspect]
     Indication: ECZEMA
  3. DORZOLAMIDE (DORZOLAMIDE) [Suspect]
     Indication: INTRAOCULAR PRESSURE INCREASED
     Dosage: 3 IN 1 D, OPTHALMIC
  4. SALICYLIC ACID (SALICYLIC ACID) [Suspect]
     Indication: ECZEMA
  5. TIMOLOL MALEATE [Suspect]
     Indication: INTRAOCULAR PRESSURE INCREASED

REACTIONS (6)
  - ASTHMA [None]
  - CONDITION AGGRAVATED [None]
  - DRUG INEFFECTIVE [None]
  - HEADACHE [None]
  - INTRAOCULAR PRESSURE INCREASED [None]
  - VISION BLURRED [None]
